FAERS Safety Report 4377453-0 (Version None)
Quarter: 2004Q2

REPORT INFORMATION
  Report Type: 
  Country: None (occurrence: None)
  Receive Date: 20040609
  Receipt Date: 20040521
  Transmission Date: 20050107
  Serious: Yes (Death, Hospitalization)
  Sender: FDA-Public Use
  Company Number: EWC040539372

PATIENT
  Age: 25 Year
  Sex: Female
  Weight: 56 kg

DRUGS (4)
  1. OLANZAPINE [Suspect]
     Indication: SCHIZOPHRENIA
     Dosage: 20 MG DAY
     Dates: start: 20040502, end: 20040510
  2. OLANZAPINE-RAPID-ACTING IM [Suspect]
     Dosage: 30 MG IN THE MORNING
     Dates: start: 20040428, end: 20040501
  3. RELADORM [Concomitant]
  4. CYCLODOL (CYCLODOL) [Concomitant]

REACTIONS (3)
  - CONDITION AGGRAVATED [None]
  - INJURY ASPHYXIATION [None]
  - SCHIZOPHRENIA [None]
